FAERS Safety Report 14447149 (Version 4)
Quarter: 2018Q2

REPORT INFORMATION
  Report Type: Spontaneous
  Country: BE (occurrence: BE)
  Receive Date: 20180126
  Receipt Date: 20180518
  Transmission Date: 20180711
  Serious: Yes (Life-Threatening, Hospitalization, Other)
  Sender: FDA-Public Use
  Company Number: PHHY2018BE012357

PATIENT
  Age: 58 Year
  Sex: Male

DRUGS (3)
  1. GLICLAZIDE [Concomitant]
     Active Substance: GLICLAZIDE
     Indication: TYPE 2 DIABETES MELLITUS
     Dosage: 30 MG, QD
     Route: 065
  2. METFORMIN [Suspect]
     Active Substance: METFORMIN HYDROCHLORIDE
     Indication: TYPE 2 DIABETES MELLITUS
     Dosage: 850 MG, TID
     Route: 065
  3. METFORMIN [Suspect]
     Active Substance: METFORMIN HYDROCHLORIDE
     Indication: TYPE 2 DIABETES MELLITUS

REACTIONS (17)
  - Myalgia [Unknown]
  - Dyspnoea [Unknown]
  - Pallor [Unknown]
  - Hyperventilation [Unknown]
  - Acute kidney injury [Recovering/Resolving]
  - Mental status changes [Unknown]
  - Hyperkalaemia [Unknown]
  - Back pain [Unknown]
  - Speech disorder [Unknown]
  - Toxicity to various agents [Recovering/Resolving]
  - Asthenia [Unknown]
  - Confusional state [Unknown]
  - Renal tubular acidosis [Recovering/Resolving]
  - Lactic acidosis [Recovering/Resolving]
  - Vomiting [Unknown]
  - Restlessness [Unknown]
  - Acute myocardial infarction [Unknown]
